FAERS Safety Report 18394892 (Version 1)
Quarter: 2020Q4

REPORT INFORMATION
  Report Type: Spontaneous
  Country: CA (occurrence: CA)
  Receive Date: 20201016
  Receipt Date: 20201016
  Transmission Date: 20210114
  Serious: Yes (Other)
  Sender: FDA-Public Use
  Company Number: CA-ALSI-202000411

PATIENT
  Age: 20 Year
  Sex: Male
  Weight: 65 kg

DRUGS (8)
  1. ROCURONIUM [Concomitant]
     Active Substance: ROCURONIUM BROMIDE
  2. LAMOTRIGINE. [Suspect]
     Active Substance: LAMOTRIGINE
     Route: 065
  3. NEOSTIGMINE METHYLSULFATE. [Suspect]
     Active Substance: NEOSTIGMINE METHYLSULFATE
     Route: 042
  4. NITROUS OXIDE. [Suspect]
     Active Substance: NITROUS OXIDE
     Indication: GENERAL ANAESTHESIA
     Route: 055
  5. SEVOFLURANE. [Suspect]
     Active Substance: SEVOFLURANE
     Route: 055
  6. GLYCOPYRROLATE USP [Suspect]
     Active Substance: GLYCOPYRROLATE
     Route: 042
  7. CARBAMAZEPINE. [Suspect]
     Active Substance: CARBAMAZEPINE
     Route: 065
  8. FENTANYL. [Suspect]
     Active Substance: FENTANYL
     Route: 042

REACTIONS (2)
  - Atrioventricular block [Unknown]
  - Bradycardia [Unknown]
